FAERS Safety Report 6405752-7 (Version None)
Quarter: 2009Q4

REPORT INFORMATION
  Report Type: 
  Country: None (occurrence: None)
  Receive Date: 20091019
  Receipt Date: 20091014
  Transmission Date: 20100525
  Serious: Yes (Hospitalization)
  Sender: FDA-Public Use
  Company Number: US-BAYER-200936382NA

PATIENT
  Age: 64 Year
  Sex: Female

DRUGS (6)
  1. AVELOX [Suspect]
     Indication: SINUSITIS
     Dosage: UNIT DOSE: 400 MG
  2. DIOVAN [Concomitant]
  3. FUROSEMIDE [Concomitant]
  4. SULINDAC [Concomitant]
  5. ACIPHEX [Concomitant]
  6. HYDROCODONE [Concomitant]

REACTIONS (1)
  - ANAPHYLACTIC REACTION [None]
